FAERS Safety Report 8946960 (Version 3)
Quarter: 2013Q1

REPORT INFORMATION
  Report Type: Spontaneous
  Country: US (occurrence: US)
  Receive Date: 20121205
  Receipt Date: 20130205
  Transmission Date: 20140127
  Serious: Yes (Other)
  Sender: FDA-Public Use
  Company Number: US-PFIZER INC-2012300364

PATIENT
  Age: 53 Year
  Sex: Female
  Weight: 70.75 kg

DRUGS (3)
  1. MS CONTIN [Suspect]
     Indication: PROCEDURAL PAIN
     Dosage: 15 MG, DAILY
     Route: 048
     Dates: start: 20121008, end: 20121123
  2. ZYRTEC [Concomitant]
     Dosage: UNK
  3. ALPRAZOLAM [Concomitant]

REACTIONS (16)
  - Throat tightness [Recovered/Resolved]
  - Influenza like illness [Recovered/Resolved]
  - Aphagia [Recovered/Resolved]
  - Acne [Recovered/Resolved]
  - Tongue eruption [Recovered/Resolved]
  - Dyspnoea [Recovered/Resolved]
  - Chest discomfort [Recovered/Resolved]
  - Erythema [Recovered/Resolved]
  - Feeling hot [Recovered/Resolved]
  - Dental care [Unknown]
  - Rash [Recovered/Resolved]
  - Flushing [Recovered/Resolved]
  - Dry mouth [Recovered/Resolved]
  - Oral mucosal blistering [Recovered/Resolved]
  - Urticaria [Recovered/Resolved]
  - Pruritus [Recovered/Resolved]
